FAERS Safety Report 9632244 (Version 3)
Quarter: 2014Q1

REPORT INFORMATION
  Report Type: Spontaneous
  Country: AU (occurrence: AU)
  Receive Date: 20131018
  Receipt Date: 20140217
  Transmission Date: 20141002
  Serious: Yes (Hospitalization, Other)
  Sender: FDA-Public Use
  Company Number: AU-ELI_LILLY_AND_COMPANY-AU201309003322

PATIENT
  Age: 32 Year
  Sex: Male

DRUGS (5)
  1. CYMBALTA [Suspect]
     Indication: NEURALGIA
     Dosage: 60 MG, QD
     Route: 065
     Dates: start: 20130722, end: 20130823
  2. CYMBALTA [Suspect]
     Indication: NEURALGIA
  3. PANADENE [Concomitant]
     Indication: PAIN
     Dosage: 1 DF, UNKNOWN
     Route: 065
  4. DEXAMETHASONE [Concomitant]
     Indication: ADRENOGENITAL SYNDROME
     Dosage: 1 DF, UNKNOWN
     Route: 065
  5. FLUDROCORTISONE [Concomitant]
     Indication: ADRENOGENITAL SYNDROME
     Dosage: 1 DF, UNKNOWN
     Route: 065

REACTIONS (14)
  - Loss of consciousness [Recovered/Resolved]
  - Hyponatraemia [Recovered/Resolved]
  - Convulsion [Recovered/Resolved]
  - General physical health deterioration [Unknown]
  - Memory impairment [Unknown]
  - Off label use [Recovered/Resolved]
  - Malaise [Unknown]
  - Hypoaesthesia [Unknown]
  - Decreased appetite [Unknown]
  - Lethargy [Unknown]
  - Vomiting [Unknown]
  - Disorientation [Unknown]
  - Stress [Unknown]
  - Pain [Unknown]
